FAERS Safety Report 7716646-9 (Version None)
Quarter: 2011Q3

REPORT INFORMATION
  Report Type: 
  Country: None (occurrence: None)
  Receive Date: 20110829
  Receipt Date: 20110824
  Transmission Date: 20111222
  Serious: Yes (Hospitalization)
  Sender: FDA-Public Use
  Company Number: PH-ELI_LILLY_AND_COMPANY-PH201108008332

PATIENT
  Age: 57 Year
  Sex: Male

DRUGS (2)
  1. HUMALOG [Suspect]
  2. HUMALOG MIX 75/25 [Suspect]
     Dosage: UNK

REACTIONS (3)
  - DRUG DISPENSING ERROR [None]
  - HOSPITALISATION [None]
  - HYPOGLYCAEMIA [None]
